FAERS Safety Report 18226868 (Version 2)
Quarter: 2021Q2

REPORT INFORMATION
  Report Type: Spontaneous
  Country: CA (occurrence: CA)
  Receive Date: 20200903
  Receipt Date: 20210614
  Transmission Date: 20210717
  Serious: Yes (Other)
  Sender: FDA-Public Use
  Company Number: CA-ACCORD-198608

PATIENT
  Age: 4 Year
  Sex: Male

DRUGS (1)
  1. PACLITAXEL/PACLITAXEL LIPOSOME [Suspect]
     Active Substance: PACLITAXEL
     Indication: STENOSIS
     Dosage: DRUG COATED BALLOONS

REACTIONS (2)
  - Budd-Chiari syndrome [Recovered/Resolved]
  - Off label use [Unknown]
